FAERS Safety Report 16311018 (Version 1)
Quarter: 2019Q2

REPORT INFORMATION
  Report Type: Spontaneous
  Country: FR (occurrence: FR)
  Receive Date: 20190514
  Receipt Date: 20190514
  Transmission Date: 20190711
  Serious: Yes (Hospitalization, Other)
  Sender: FDA-Public Use
  Company Number: PHHY2019FR106073

PATIENT
  Age: 82 Year
  Sex: Female
  Weight: 54 kg

DRUGS (4)
  1. ATACAND [Suspect]
     Active Substance: CANDESARTAN CILEXETIL
     Indication: HYPERTENSION
     Dosage: 2 OT, QD (1/2 TABLET)
     Route: 048
  2. ATACAND [Suspect]
     Active Substance: CANDESARTAN CILEXETIL
     Dosage: 2 OT, QD (1/4 TABLET  )
     Route: 048
  3. LOSARTAN. [Interacting]
     Active Substance: LOSARTAN
     Dosage: UNK (DOSE DECREASED)
     Route: 065
  4. LOSARTAN. [Suspect]
     Active Substance: LOSARTAN
     Indication: PRODUCT USED FOR UNKNOWN INDICATION
     Dosage: UNK
     Route: 065

REACTIONS (6)
  - Vertigo [Recovered/Resolved]
  - Diarrhoea [Unknown]
  - Muscular weakness [Recovered/Resolved]
  - Potentiating drug interaction [Unknown]
  - Cerebellar syndrome [Unknown]
  - Syncope [Recovered/Resolved]
